FAERS Safety Report 10078743 (Version 1)
Quarter: 2014Q2

REPORT INFORMATION
  Report Type: Spontaneous
  Country: US (occurrence: US)
  Receive Date: 20140415
  Receipt Date: 20140415
  Transmission Date: 20141212
  Serious: Yes (Hospitalization, Disabling, Other)
  Sender: FDA-Public Use
  Company Number: US-SA-2014SA041523

PATIENT
  Age: 53 Year
  Sex: Male
  Weight: 127 kg

DRUGS (10)
  1. PLAVIX [Suspect]
     Indication: PRODUCT USED FOR UNKNOWN INDICATION
     Route: 065
     Dates: start: 1998
  2. DILAUDID [Concomitant]
     Dosage: 2MG
  3. CLONIDINE [Concomitant]
     Dosage: 2MG 1 TABLET Q6H?PRN
  4. DIAZEPAM [Concomitant]
     Indication: MUSCLE SPASMS
     Dosage: 5MG 1 TABLET Q6H PRN
  5. LIDODERM [Concomitant]
     Dosage: PATCH 5% 700MG, 2 PATCHES, REMOVE AT BEDTIME, 12H ON AND 12H OFF
  6. OXYCODONE [Concomitant]
     Indication: PAIN
     Dosage: 5MG/325MG 2 TABLETS?Q4H PRN
  7. RAMIPRIL [Concomitant]
  8. GABAPENTIN [Concomitant]
     Dosage: 400 MG
  9. ZOLPIDEM [Concomitant]
     Indication: SLEEP DISORDER
     Dosage: 10MG ONE TABLET HS PRN
  10. CYMBALTA [Concomitant]

REACTIONS (22)
  - Cerebrovascular accident [Unknown]
  - Myocardial infarction [Unknown]
  - Cardiac operation [Unknown]
  - Neoplasm malignant [Unknown]
  - Prostate cancer [Unknown]
  - Cardiac failure congestive [Unknown]
  - Vascular graft [Unknown]
  - Diabetes mellitus [Unknown]
  - Surgery [Unknown]
  - Stent placement [Unknown]
  - Diverticulitis [Unknown]
  - Hernia [Unknown]
  - Chronic obstructive pulmonary disease [Unknown]
  - Memory impairment [Unknown]
  - Emphysema [Unknown]
  - Sleep apnoea syndrome [Unknown]
  - Hypertension [Unknown]
  - Large intestine polyp [Unknown]
  - Cluster headache [Unknown]
  - Neuropathy peripheral [Unknown]
  - Drug dose omission [Unknown]
  - Disability [Unknown]
